FAERS Safety Report 23807189 (Version 1)
Quarter: 2024Q2

REPORT INFORMATION
  Report Type: Spontaneous
  Country: US (occurrence: US)
  Receive Date: 20240502
  Receipt Date: 20240502
  Transmission Date: 20240716
  Serious: No
  Sender: FDA-Public Use
  Company Number: US-RECKITT BENCKISER HEALTHCARE INT LIMITED-RB-093159-2023

PATIENT
  Age: 83 Year
  Sex: Male

DRUGS (1)
  1. MUCINEX DM [Suspect]
     Active Substance: DEXTROMETHORPHAN HYDROBROMIDE\GUAIFENESIN
     Indication: Cough
     Dosage: 1 DF SINGLE
     Route: 048
     Dates: start: 20230504, end: 20230504

REACTIONS (1)
  - Blood glucose increased [Recovered/Resolved]

NARRATIVE: CASE EVENT DATE: 20230504
